FAERS Safety Report 4507709-X (Version None)
Quarter: 2004Q4

REPORT INFORMATION
  Report Type: 
  Country: None (occurrence: None)
  Receive Date: 20040928
  Receipt Date: 20040630
  Transmission Date: 20050328
  Serious: No
  Sender: FDA-Public Use
  Company Number: 04P-163-0265283-00

PATIENT
  Age: 82 Year
  Sex: Female
  Weight: 65.7716 kg

DRUGS (13)
  1. HUMIRA [Suspect]
     Indication: RHEUMATOID ARTHRITIS
     Dosage: 40 MG, 1 IN 2 WK, SUBCUTANEOUS
     Route: 058
     Dates: start: 20040201, end: 20040601
  2. POTASSIUM CHLORIDE [Concomitant]
  3. OMEPRAZOLE [Concomitant]
  4. DIGOXIN [Concomitant]
  5. HYDROCODONE [Concomitant]
  6. QUININE [Concomitant]
  7. CELECOXIB [Concomitant]
  8. NIFEDIPINE [Concomitant]
  9. FUROSEMIDE [Concomitant]
  10. LEVOTHYROXINE SODIUM [Concomitant]
  11. CONJUGATED ESTROGEN [Concomitant]
  12. OSTRACAL [Concomitant]
  13. GLUCOSAMINE [Concomitant]

REACTIONS (1)
  - LYMPHOMA [None]
